FAERS Safety Report 15599133 (Version 1)
Quarter: 2018Q4

REPORT INFORMATION
  Report Type: Spontaneous
  Country: FR (occurrence: FR)
  Receive Date: 20181108
  Receipt Date: 20181108
  Transmission Date: 20190205
  Serious: Yes (Other)
  Sender: FDA-Public Use
  Company Number: PHHY2018FR148898

PATIENT
  Age: 68 Year
  Sex: Female

DRUGS (1)
  1. ACIDE ZOLEDRONIQUE SANDOZ [Suspect]
     Active Substance: ZOLEDRONIC ACID
     Indication: OSTEOPOROSIS
     Dosage: 1 ?G/L, 01 TOTAL
     Route: 042
     Dates: start: 20181011, end: 20181011

REACTIONS (2)
  - Scleritis [Not Recovered/Not Resolved]
  - Uveitis [Not Recovered/Not Resolved]

NARRATIVE: CASE EVENT DATE: 20181015
